FAERS Safety Report 12888897 (Version 2)
Quarter: 2016Q4

REPORT INFORMATION
  Report Type: Report from Study
  Country: FR (occurrence: FR)
  Receive Date: 20161027
  Receipt Date: 20161216
  Transmission Date: 20170207
  Serious: Yes (Other)
  Sender: FDA-Public Use
  Company Number: FR-JNJFOC-20161020748

PATIENT
  Sex: Male

DRUGS (2)
  1. PREDNISONE. [Suspect]
     Active Substance: PREDNISONE
     Indication: PROSTATE CANCER
     Dosage: SAE CYCLE NUMBER 2 (CUMULATIVE DOSE SINCE THE FIRST ADMINISTRATION WAS 550 MG)
     Route: 048
     Dates: start: 20160222
  2. ABIRATERONE ACETATE [Suspect]
     Active Substance: ABIRATERONE ACETATE
     Indication: PROSTATE CANCER
     Dosage: SAE CYCLE NUMBER 2 (CUMULATIVE DOSE SINCE THE 1ST ADMINISTRATION WAS 55000 MG)
     Route: 048
     Dates: start: 20160222

REACTIONS (1)
  - Gastric cancer [Not Recovered/Not Resolved]

NARRATIVE: CASE EVENT DATE: 20161006
